FAERS Safety Report 12531403 (Version 2)
Quarter: 2016Q3

REPORT INFORMATION
  Report Type: Spontaneous
  Country: JP (occurrence: JP)
  Receive Date: 20160706
  Receipt Date: 20160829
  Transmission Date: 20161109
  Serious: Yes (Life-Threatening, Hospitalization)
  Sender: FDA-Public Use
  Company Number: JP-SA-2016SA080423

PATIENT
  Age: 76 Year
  Sex: Male
  Weight: 48 kg

DRUGS (4)
  1. MARZULENE [Concomitant]
     Active Substance: SODIUM GUALENATE
     Indication: CHRONIC GASTRITIS
     Route: 048
  2. AMLODIPINE [Concomitant]
     Active Substance: AMLODIPINE BESYLATE
     Indication: HYPERTENSION
     Route: 048
  3. ADALAT [Concomitant]
     Active Substance: NIFEDIPINE
     Indication: HYPERTENSION
     Route: 048
  4. PLAVIX [Suspect]
     Active Substance: CLOPIDOGREL BISULFATE
     Indication: TRANSIENT ISCHAEMIC ATTACK
     Route: 048
     Dates: start: 20160226, end: 20160406

REACTIONS (7)
  - White blood cell count decreased [Recovered/Resolved]
  - Pharyngitis [Recovering/Resolving]
  - Oropharyngeal pain [Recovering/Resolving]
  - Agranulocytosis [Recovered/Resolved]
  - Febrile neutropenia [Recovering/Resolving]
  - Streptococcal infection [Recovering/Resolving]
  - Bacterial sepsis [Recovering/Resolving]

NARRATIVE: CASE EVENT DATE: 2016
